FAERS Safety Report 12690301 (Version 4)
Quarter: 2016Q4

REPORT INFORMATION
  Report Type: Spontaneous
  Country: NO (occurrence: NO)
  Receive Date: 20160826
  Receipt Date: 20161104
  Transmission Date: 20170207
  Serious: Yes (Death, Hospitalization)
  Sender: FDA-Public Use
  Company Number: NO-MALLINCKRODT-T201603886

PATIENT
  Sex: Male
  Weight: 65 kg

DRUGS (4)
  1. UVADEX [Suspect]
     Active Substance: METHOXSALEN
     Indication: SCLERODERMA
     Dosage: 4.7 ML, 63.22 MIN PHOTOACTIVATION
     Dates: start: 20160803, end: 20160803
  2. ANTICOAGULANT CITRATE DEXTROSE SOLUTION (ACD) NOS [Concomitant]
     Active Substance: CITRIC ACID MONOHYDRATE\DEXTROSE\SODIUM CITRATE
     Indication: ANTICOAGULANT THERAPY
     Dosage: 12:1 RATIO
     Dates: start: 20160802, end: 20160802
  3. UVADEX [Suspect]
     Active Substance: METHOXSALEN
     Indication: GRAFT VERSUS HOST DISEASE IN SKIN
     Dosage: 3.1ML, 11.31MIN PHOTOACTIVATION
     Dates: start: 20160802, end: 20160802
  4. ANTICOAGULANT CITRATE DEXTROSE SOLUTION (ACD) NOS [Concomitant]
     Active Substance: CITRIC ACID MONOHYDRATE\DEXTROSE\SODIUM CITRATE
     Dosage: 12:1 RATIO
     Dates: start: 20160803, end: 20160803

REACTIONS (6)
  - Pain [Unknown]
  - Off label use [Unknown]
  - Blood pressure increased [Unknown]
  - Muscle haemorrhage [Unknown]
  - Pulmonary embolism [Unknown]
  - Sepsis [Fatal]

NARRATIVE: CASE EVENT DATE: 20160803
